FAERS Safety Report 14700488 (Version 7)
Quarter: 2022Q2

REPORT INFORMATION
  Report Type: Spontaneous
  Country: US (occurrence: None)
  Receive Date: 20180330
  Receipt Date: 20220628
  Transmission Date: 20220720
  Serious: Yes (Other)
  Sender: FDA-Public Use
  Company Number: 2018SE36834

PATIENT
  Age: 22666 Day
  Sex: Female

DRUGS (73)
  1. NEXIUM [Suspect]
     Active Substance: ESOMEPRAZOLE MAGNESIUM
     Indication: Gastrooesophageal reflux disease
     Route: 048
     Dates: start: 1986, end: 2011
  2. NEXIUM [Suspect]
     Active Substance: ESOMEPRAZOLE MAGNESIUM
     Indication: Gastrooesophageal reflux disease
     Route: 048
     Dates: start: 2002
  3. NEXIUM [Suspect]
     Active Substance: ESOMEPRAZOLE MAGNESIUM
     Indication: Gastrooesophageal reflux disease
     Route: 048
     Dates: start: 20090416
  4. NEXIUM [Suspect]
     Active Substance: ESOMEPRAZOLE MAGNESIUM
     Indication: Gastrooesophageal reflux disease
     Route: 048
     Dates: start: 20100819
  5. OMEPRAZOLE [Suspect]
     Active Substance: OMEPRAZOLE
     Indication: Gastrooesophageal reflux disease
     Dosage: GENERIC
     Route: 065
     Dates: start: 2013
  6. OMEPRAZOLE [Suspect]
     Active Substance: OMEPRAZOLE
     Indication: Gastrooesophageal reflux disease
     Dosage: GENERIC
     Route: 065
     Dates: start: 2012
  7. LANSOPRAZOLE [Suspect]
     Active Substance: LANSOPRAZOLE
     Indication: Gastrooesophageal reflux disease
     Dosage: GENERIC
     Route: 065
     Dates: start: 2012
  8. LANSOPRAZOLE [Suspect]
     Active Substance: LANSOPRAZOLE
     Indication: Gastrooesophageal reflux disease
     Dosage: GENERIC
     Route: 065
     Dates: start: 20130422
  9. LANSOPRAZOLE [Suspect]
     Active Substance: LANSOPRAZOLE
     Indication: Gastrooesophageal reflux disease
     Dosage: GENERIC
     Route: 065
     Dates: start: 2013
  10. LINACLOTIDE [Concomitant]
     Active Substance: LINACLOTIDE
  11. LEVOXYL [Concomitant]
     Active Substance: LEVOTHYROXINE SODIUM
  12. SPIRIVA [Concomitant]
     Active Substance: TIOTROPIUM BROMIDE MONOHYDRATE
  13. ADALAT CC [Concomitant]
     Active Substance: NIFEDIPINE
  14. VITAMIN D [Concomitant]
     Active Substance: VITAMIN D NOS
  15. LASIX [Concomitant]
     Active Substance: FUROSEMIDE
  16. NORMODYNE [Concomitant]
     Active Substance: LABETALOL HYDROCHLORIDE
  17. COUMADIN [Concomitant]
     Active Substance: WARFARIN SODIUM
  18. ASPIRIN [Concomitant]
     Active Substance: ASPIRIN
  19. ZETIA [Concomitant]
     Active Substance: EZETIMIBE
  20. TRICOR [Concomitant]
     Active Substance: FENOFIBRATE
  21. LIPITOR [Concomitant]
     Active Substance: ATORVASTATIN CALCIUM
  22. CLINDAMYCIN [Concomitant]
     Active Substance: CLINDAMYCIN
  23. CELEBREX [Concomitant]
     Active Substance: CELECOXIB
  24. PAROXETINE [Concomitant]
     Active Substance: PAROXETINE
  25. OXCARBAZEPINE [Concomitant]
     Active Substance: OXCARBAZEPINE
  26. AVELOX [Concomitant]
     Active Substance: MOXIFLOXACIN HYDROCHLORIDE
  27. COMBIVENT [Concomitant]
     Active Substance: ALBUTEROL SULFATE\IPRATROPIUM BROMIDE
  28. ACETAMINOPHEN [Concomitant]
     Active Substance: ACETAMINOPHEN
  29. BENADRYL [Concomitant]
     Active Substance: DIPHENHYDRAMINE HYDROCHLORIDE
  30. ACETAMINOPHEN\HYDROCODONE BITARTRATE [Concomitant]
     Active Substance: ACETAMINOPHEN\HYDROCODONE BITARTRATE
  31. AMITRIPTYLINE [Concomitant]
     Active Substance: AMITRIPTYLINE
  32. MEPERIDINE [Concomitant]
     Active Substance: MEPERIDINE
  33. TRAMADOL [Concomitant]
     Active Substance: TRAMADOL
  34. GABAPENTIN [Concomitant]
     Active Substance: GABAPENTIN
  35. PROAIR HFA [Concomitant]
     Active Substance: ALBUTEROL SULFATE
  36. LISINOPRIL [Concomitant]
     Active Substance: LISINOPRIL
  37. ACTONEL [Concomitant]
     Active Substance: RISEDRONATE SODIUM
  38. METOPROLOL TARTRATE [Concomitant]
     Active Substance: METOPROLOL TARTRATE
  39. MELOXICAM [Concomitant]
     Active Substance: MELOXICAM
  40. TOPIRAMATE [Concomitant]
     Active Substance: TOPIRAMATE
  41. ALENDRONATE SODIUM [Concomitant]
     Active Substance: ALENDRONATE SODIUM
  42. BACLOFEN [Concomitant]
     Active Substance: BACLOFEN
  43. PREDNISONE [Concomitant]
     Active Substance: PREDNISONE
  44. LEVOFLOXACIN [Concomitant]
     Active Substance: LEVOFLOXACIN
  45. MONTELUKAST [Concomitant]
     Active Substance: MONTELUKAST SODIUM
  46. ONDANSETRON [Concomitant]
     Active Substance: ONDANSETRON
  47. AMLODIPINE BESYLATE [Concomitant]
     Active Substance: AMLODIPINE BESYLATE
  48. CARDIZEM [Concomitant]
     Active Substance: DILTIAZEM HYDROCHLORIDE
     Indication: Atrial fibrillation
  49. AMITIZA [Concomitant]
     Active Substance: LUBIPROSTONE
     Indication: Constipation
  50. SYMBICORT [Concomitant]
     Active Substance: BUDESONIDE\FORMOTEROL FUMARATE DIHYDRATE
     Indication: Chronic obstructive pulmonary disease
  51. PEPCID [Concomitant]
     Active Substance: FAMOTIDINE
     Indication: Ulcer
  52. PEPCID [Concomitant]
     Active Substance: FAMOTIDINE
     Indication: Gastrooesophageal reflux disease
  53. LOVENOX [Concomitant]
     Active Substance: ENOXAPARIN SODIUM
     Indication: Thyroid disorder
  54. WELLBUTRIN [Concomitant]
     Active Substance: BUPROPION HYDROCHLORIDE
     Indication: Depression
  55. WARFARIN [Concomitant]
     Active Substance: WARFARIN
     Indication: Atrial fibrillation
  56. NEPHRO VITE RX [Concomitant]
     Active Substance: ASCORBIC ACID\BIOTIN\CALCIUM PANTOTHENATE\CYANOCOBALAMIN\FOLIC ACID\NIACINAMIDE\PYRIDOXINE HYDROCHLO
     Indication: Renal disorder
  57. FUROSEMIDE [Concomitant]
     Active Substance: FUROSEMIDE
     Indication: Fluid retention
  58. FISH OIL [Concomitant]
     Active Substance: FISH OIL
     Indication: Blood cholesterol
  59. ROPINIROLE [Concomitant]
     Active Substance: ROPINIROLE
     Indication: Restless legs syndrome
  60. GENTAMICIN [Concomitant]
     Active Substance: GENTAMICIN
  61. SENNA [Concomitant]
     Active Substance: SENNA LEAF\SENNOSIDES\SENNOSIDES A AND B
  62. DOCUSATE SODIUM [Concomitant]
     Active Substance: DOCUSATE SODIUM
  63. LACTULOSE [Concomitant]
     Active Substance: LACTULOSE
  64. BETAMETHASONE [Concomitant]
     Active Substance: BETAMETHASONE
  65. PREMARIN [Concomitant]
     Active Substance: ESTROGENS, CONJUGATED
  66. OXYCODONE-ACTEAMINOPHEN [Concomitant]
  67. VIRTUSSIN AC [Concomitant]
     Active Substance: CODEINE PHOSPHATE\GUAIFENESIN
  68. SUPREP BOWEL [Concomitant]
  69. METOPROLOL SUCCINATE [Concomitant]
     Active Substance: METOPROLOL SUCCINATE
  70. CYCLOBENZAPRINE [Concomitant]
     Active Substance: CYCLOBENZAPRINE
  71. ELIQUIS [Concomitant]
     Active Substance: APIXABAN
  72. BENZONATATE [Concomitant]
     Active Substance: BENZONATATE
  73. AZELASTINE [Concomitant]
     Active Substance: AZELASTINE

REACTIONS (8)
  - Chronic kidney disease [Unknown]
  - Renal disorder [Unknown]
  - End stage renal disease [Not Recovered/Not Resolved]
  - Acute kidney injury [Unknown]
  - Renal failure [Unknown]
  - Nephrogenic anaemia [Unknown]
  - Hyperparathyroidism secondary [Unknown]
  - Chronic kidney disease-mineral and bone disorder [Unknown]

NARRATIVE: CASE EVENT DATE: 20100722
